FAERS Safety Report 5121424-3 (Version None)
Quarter: 2006Q3

REPORT INFORMATION
  Report Type: 
  Country: None (occurrence: None)
  Receive Date: 20060929
  Receipt Date: 20060922
  Transmission Date: 20061208
  Serious: Yes (Hospitalization, Other)
  Sender: FDA-Public Use
  Company Number: HQWYE197026SEP06

PATIENT
  Age: 49 Year
  Sex: Female
  Weight: 88.08 kg

DRUGS (3)
  1. PREMARIN [Suspect]
     Indication: HOT FLUSH
     Dosage: 0.9 MG 1X PER 1 DAY, ORAL
     Route: 048
     Dates: start: 20060519, end: 20060908
  2. PREMARIN [Suspect]
     Indication: HOT FLUSH
     Dosage: 0.625 MG ORALLY DAILY, ORAL
     Route: 048
     Dates: start: 19850101, end: 20060518
  3. PREMARIN [Suspect]
     Indication: ATROPHY
     Dosage: AS NEEDED, VAGINAL
     Route: 067
     Dates: start: 20060519, end: 20060908

REACTIONS (1)
  - COLITIS ISCHAEMIC [None]
